FAERS Safety Report 4658806-X (Version None)
Quarter: 2005Q2

REPORT INFORMATION
  Report Type: 
  Country: None (occurrence: None)
  Receive Date: 20050509
  Receipt Date: 20050426
  Transmission Date: 20051028
  Serious: Yes (Hospitalization)
  Sender: FDA-Public Use
  Company Number: 2005065856

PATIENT
  Age: 66 Year
  Sex: Female

DRUGS (2)
  1. AZULFIDINE EN-TABS [Suspect]
     Indication: JOINT SWELLING
     Dosage: 1 GRAM (1 IN 1 D), ORAL
     Route: 048
     Dates: start: 20010427
  2. PREDNISONE [Concomitant]

REACTIONS (1)
  - INTERSTITIAL LUNG DISEASE [None]
